FAERS Safety Report 14069643 (Version 1)
Quarter: 2017Q4

REPORT INFORMATION
  Report Type: Spontaneous
  Country: NL (occurrence: NL)
  Receive Date: 20171010
  Receipt Date: 20171010
  Transmission Date: 20180321
  Serious: Yes (Death, Hospitalization, Other)
  Sender: FDA-Public Use
  Company Number: NL-ALEMBIC PHARMACUETICALS LIMITED-2017SCAL000792

PATIENT

DRUGS (4)
  1. HYDROCHLOROTHIAZIDE. [Suspect]
     Active Substance: HYDROCHLOROTHIAZIDE
     Indication: HYPERTENSION
     Dosage: UNK
  2. PREDNISOLONE. [Suspect]
     Active Substance: PREDNISOLONE
     Indication: CROHN^S DISEASE
     Dosage: 40 MG, UNK
  3. POLYETHYLENE GLYCOL [Suspect]
     Active Substance: POLYETHYLENE GLYCOLS
     Indication: BOWEL PREPARATION
     Dosage: 2 L LOW-VOLUME PEG
  4. POLYETHYLENE GLYCOL [Suspect]
     Active Substance: POLYETHYLENE GLYCOLS
     Dosage: 3 L LOW VOLUME PEG SOLUTION

REACTIONS (3)
  - Ventricular fibrillation [Fatal]
  - Hypokalaemia [Fatal]
  - Cardiac arrest [Fatal]
